FAERS Safety Report 4411386-6 (Version None)
Quarter: 2004Q3

REPORT INFORMATION
  Report Type: 
  Country: None (occurrence: None)
  Receive Date: 20040727
  Receipt Date: 20040712
  Transmission Date: 20050211
  Serious: Yes (Hospitalization)
  Sender: FDA-Public Use
  Company Number: 2004GB01649

PATIENT
  Age: 23 Year
  Sex: Female

DRUGS (3)
  1. XYLOCAINE W/ EPINEPHRINE [Suspect]
     Indication: LOCAL ANAESTHESIA
     Dosage: 6.6 ML ICV
     Dates: start: 20040615, end: 20040615
  2. SULTRIN [Suspect]
     Indication: ANTIBACTERIAL PROPHYLAXIS
     Dates: start: 20040615, end: 20040615
  3. LEVONORGESTREL AND ETHINYL ESTRADIOL [Concomitant]

REACTIONS (7)
  - ANAESTHETIC COMPLICATION [None]
  - DIZZINESS [None]
  - FEELING ABNORMAL [None]
  - FEELING HOT [None]
  - NAUSEA [None]
  - TACHYCARDIA [None]
  - TREMOR [None]
